FAERS Safety Report 8085107 (Version 2)
Quarter: 2014Q2

REPORT INFORMATION
  Report Type: Spontaneous
  Country: US (occurrence: US)
  Receive Date: 20110810
  Receipt Date: 20140516
  Transmission Date: 20141212
  Serious: Yes (Hospitalization)
  Sender: FDA-Public Use
  Company Number: US-ASTRAZENECA-2010SE40819

PATIENT
  Age: 59 Year
  Sex: Female
  Weight: 68 kg

DRUGS (18)
  1. SEROQUEL [Suspect]
     Indication: SLEEP DISORDER
     Dosage: DAILY
     Route: 048
  2. SEROQUEL [Suspect]
     Indication: PSYCHOTIC DISORDER
     Dosage: DAILY
     Route: 048
  3. SEROQUEL [Suspect]
     Indication: BIPOLAR I DISORDER
     Dosage: DAILY
     Route: 048
  4. SEROQUEL [Suspect]
     Indication: SLEEP DISORDER
     Route: 048
     Dates: start: 2000
  5. SEROQUEL [Suspect]
     Indication: PSYCHOTIC DISORDER
     Route: 048
     Dates: start: 2000
  6. SEROQUEL [Suspect]
     Indication: BIPOLAR I DISORDER
     Route: 048
     Dates: start: 2000
  7. NEXIUM [Suspect]
     Indication: GASTRIC ULCER
     Route: 048
     Dates: start: 2010
  8. NEXIUM [Suspect]
     Indication: IRRITABLE BOWEL SYNDROME
     Route: 048
     Dates: start: 2010
  9. NEXIUM [Suspect]
     Indication: GASTRITIS
     Route: 048
     Dates: start: 2010
  10. NEXIUM [Suspect]
     Indication: IMPAIRED GASTRIC EMPTYING
     Route: 048
     Dates: start: 2010
  11. KLONAZAPAM [Concomitant]
  12. SONATA [Concomitant]
  13. REGLAN [Concomitant]
  14. RANITIDINE [Concomitant]
  15. MIRTAZAPINE [Concomitant]
  16. HYDROXYZINE [Concomitant]
  17. PROTONIX [Concomitant]
  18. DICYCLOMINE [Concomitant]

REACTIONS (10)
  - Acute psychosis [Unknown]
  - Hangover [Recovered/Resolved]
  - Gastric ulcer [Unknown]
  - Irritable bowel syndrome [Unknown]
  - Gastritis [Unknown]
  - Impaired gastric emptying [Unknown]
  - Abdominal pain upper [Unknown]
  - Dyspepsia [Unknown]
  - Drug dose omission [Unknown]
  - Intentional product misuse [Unknown]
